FAERS Safety Report 8853017 (Version 1)
Quarter: 2012Q4

REPORT INFORMATION
  Report Type: 
  Country: DK (occurrence: DE)
  Receive Date: 20121022
  Receipt Date: 20121022
  Transmission Date: 20130627
  Serious: Yes (Hospitalization, Disabling, Congenital Anomaly, Other)
  Sender: FDA-Public Use
  Company Number: DE-FRI-1000039618

PATIENT
  Age: 0 Year
  Sex: Male
  Weight: 3.78 kg

DRUGS (2)
  1. CITALOPRAM [Suspect]
     Dosage: Unknown
     Route: 064
  2. THYROXIN [Suspect]
     Dosage: Unknown
     Route: 064

REACTIONS (7)
  - Ventricular septal defect [Unknown]
  - Cleft lip and palate [Not Recovered/Not Resolved]
  - Atrial septal defect [Unknown]
  - Hypoglycaemia neonatal [Recovered/Resolved]
  - Neonatal respiratory distress syndrome [Recovered/Resolved]
  - Caesarean section [Recovered/Resolved]
  - Foetal exposure during pregnancy [Recovered/Resolved]
